FAERS Safety Report 8094548-9 (Version None)
Quarter: 2012Q1

REPORT INFORMATION
  Report Type: 
  Country: None (occurrence: None)
  Receive Date: 20120126
  Receipt Date: 20120112
  Transmission Date: 20120608
  Serious: Yes (Life-Threatening, Other)
  Sender: FDA-Public Use
  Company Number: JP-2012-10245

PATIENT
  Age: 69 Year
  Sex: Female

DRUGS (2)
  1. PLETAL [Suspect]
     Dosage: 100 MG MILLIGRAM(S), DAILY DOSE, ORAL 200 MG MILLIGRAM(S), DAILY DOSE, ORAL
     Route: 048
     Dates: start: 20111220, end: 20111220
  2. PLETAL [Suspect]
     Dosage: 100 MG MILLIGRAM(S), DAILY DOSE, ORAL 200 MG MILLIGRAM(S), DAILY DOSE, ORAL
     Route: 048
     Dates: start: 20111221, end: 20111230

REACTIONS (3)
  - ELECTROCARDIOGRAM QT PROLONGED [None]
  - TORSADE DE POINTES [None]
  - VENTRICULAR FIBRILLATION [None]
